FAERS Safety Report 5698535-7 (Version None)
Quarter: 2008Q2

REPORT INFORMATION
  Report Type: 
  Country: None (occurrence: None)
  Receive Date: 20080403
  Receipt Date: 20080319
  Transmission Date: 20081010
  Serious: Yes (Other)
  Sender: FDA-Public Use
  Company Number: PHBS2008BR03584

PATIENT
  Age: 84 Year
  Sex: Male

DRUGS (2)
  1. VISUDYNE [Suspect]
     Indication: CHOROIDAL NEOVASCULARISATION
  2. TRIAMCINOLONE ACETONIDE [Suspect]
     Indication: CHOROIDAL NEOVASCULARISATION
     Dosage: 4 MG DAILY EY

REACTIONS (10)
  - CATARACT [None]
  - CHOROIDITIS [None]
  - DRUG INTOLERANCE [None]
  - GASTRIC DISORDER [None]
  - MACULAR HOLE [None]
  - OPTIC DISC DISORDER [None]
  - TOXOPLASMA SEROLOGY POSITIVE [None]
  - VISUAL ACUITY REDUCED [None]
  - VITREOUS FLOATERS [None]
  - VITRITIS [None]
